FAERS Safety Report 22589415 (Version 1)
Quarter: 2023Q2

REPORT INFORMATION
  Report Type: Spontaneous
  Country: HR (occurrence: HR)
  Receive Date: 20230612
  Receipt Date: 20230612
  Transmission Date: 20230722
  Serious: Yes (Other)
  Sender: FDA-Public Use
  Company Number: None

PATIENT
  Age: 20 Year
  Sex: Male
  Weight: 102 kg

DRUGS (1)
  1. AMOXICILLIN\CLAVULANATE POTASSIUM [Suspect]
     Active Substance: AMOXICILLIN\CLAVULANATE POTASSIUM
     Indication: Infection
     Dosage: 2 DOSAGE FORMS DAILY; 11DF=875 MG AMOXICILLIN TRIHYDRATE + 125 MG CLAVULANATE POTASSIUM
     Route: 065
     Dates: start: 20230511

REACTIONS (3)
  - Respiratory tract oedema [Recovering/Resolving]
  - Glossodynia [Recovering/Resolving]
  - Tongue coated [Recovering/Resolving]

NARRATIVE: CASE EVENT DATE: 20230511
